FAERS Safety Report 12952832 (Version 4)
Quarter: 2018Q1

REPORT INFORMATION
  Report Type: Report from Study
  Country: BR (occurrence: BR)
  Receive Date: 20161117
  Receipt Date: 20180301
  Transmission Date: 20180508
  Serious: Yes (Hospitalization, Other)
  Sender: FDA-Public Use
  Company Number: PHHY2016BR116925

PATIENT
  Age: 19 Year
  Sex: Male
  Weight: 45 kg

DRUGS (3)
  1. FOLIC ACID. [Concomitant]
     Active Substance: FOLIC ACID
     Indication: SICKLE CELL ANAEMIA
     Dosage: 1 DF, QD
     Route: 048
  2. HYDREA [Concomitant]
     Active Substance: HYDROXYUREA
     Indication: SICKLE CELL ANAEMIA
     Dosage: UNK
     Route: 048
  3. EXJADE [Suspect]
     Active Substance: DEFERASIROX
     Indication: SICKLE CELL ANAEMIA
     Dosage: (2 TABLET OF 500 MG+1 TABLET OF 250 MG+1 TABLET OF 125 MG)
     Route: 048
     Dates: start: 201011

REACTIONS (19)
  - Wound [Unknown]
  - Necrosis [Unknown]
  - Blister [Unknown]
  - Ulcer [Unknown]
  - Acne [Recovered/Resolved]
  - Kidney infection [Unknown]
  - Back pain [Recovering/Resolving]
  - Skin discolouration [Unknown]
  - Pruritus [Unknown]
  - Blood urine present [Unknown]
  - Pain in extremity [Recovering/Resolving]
  - Adverse drug reaction [Unknown]
  - Gait disturbance [Unknown]
  - Haemorrhage [Unknown]
  - Acarodermatitis [Unknown]
  - Skin lesion [Recovered/Resolved]
  - Sickle cell anaemia with crisis [Recovering/Resolving]
  - Spleen disorder [Unknown]
  - Weight increased [Unknown]

NARRATIVE: CASE EVENT DATE: 201605
